FAERS Safety Report 9182426 (Version 2)
Quarter: 2013Q4

REPORT INFORMATION
  Report Type: Spontaneous
  Country: US (occurrence: US)
  Receive Date: 20121030
  Receipt Date: 20131004
  Transmission Date: 20140711
  Serious: No
  Sender: FDA-Public Use
  Company Number: US-GLAXOSMITHKLINE-A0965004A

PATIENT
  Sex: Female

DRUGS (5)
  1. IMITREX [Suspect]
     Indication: MIGRAINE
     Route: 045
  2. IMITREX [Suspect]
     Indication: MIGRAINE
     Dosage: 6MG AS REQUIRED
     Route: 058
     Dates: start: 201202
  3. DEVICE [Suspect]
     Indication: MIGRAINE
     Route: 058
  4. XANAX [Concomitant]
  5. IMITREX [Concomitant]

REACTIONS (3)
  - Drug effect decreased [Unknown]
  - Chest discomfort [Recovered/Resolved]
  - Drug dispensing error [Unknown]
